FAERS Safety Report 6018215-8 (Version None)
Quarter: 2008Q4

REPORT INFORMATION
  Report Type: 
  Country: None (occurrence: None)
  Receive Date: 20081223
  Receipt Date: 20081217
  Transmission Date: 20090506
  Serious: Yes (Life-Threatening, Hospitalization, Disabling, Other)
  Sender: FDA-Public Use
  Company Number: CH-BRISTOL-MYERS SQUIBB COMPANY-14445324

PATIENT
  Age: 28 Year
  Sex: Male

DRUGS (5)
  1. ERBITUX [Suspect]
     Indication: RECTAL CANCER STAGE IV
     Route: 041
     Dates: start: 20081209
  2. OXALIPLATIN [Concomitant]
  3. FLUOROURACIL [Concomitant]
  4. LEUCOVORIN CALCIUM [Concomitant]
  5. VACCINE [Concomitant]

REACTIONS (1)
  - MENINGITIS BACTERIAL [None]
